FAERS Safety Report 7262652-0 (Version None)
Quarter: 2011Q1

REPORT INFORMATION
  Report Type: 
  Country: None (occurrence: None)
  Receive Date: 20110130
  Receipt Date: 20100919
  Transmission Date: 20110831
  Serious: No
  Sender: FDA-Public Use
  Company Number: US-ABBOTT-10P-163-0671920-00

PATIENT
  Age: 48 Year
  Sex: Male

DRUGS (7)
  1. HUMIRA [Suspect]
     Indication: CROHN'S DISEASE
     Dates: start: 20100701
  2. LORTAB [Concomitant]
     Indication: PAIN
  3. TPN ELECTROLYTES IN PLASTIC CONTAINER [Concomitant]
     Indication: PRODUCT USED FOR UNKNOWN INDICATION
  4. BONIVA [Concomitant]
     Indication: PRODUCT USED FOR UNKNOWN INDICATION
  5. NEXIUM [Concomitant]
     Indication: DYSPEPSIA
  6. LOMOTIL [Concomitant]
     Indication: ABNORMAL FAECES
  7. WARFARIN [Concomitant]
     Indication: ANTICOAGULANT THERAPY

REACTIONS (3)
  - VOMITING [None]
  - CHEST PAIN [None]
  - NAUSEA [None]
